FAERS Safety Report 4513751-5 (Version None)
Quarter: 2004Q4

REPORT INFORMATION
  Report Type: 
  Country: None (occurrence: None)
  Receive Date: 20041130
  Receipt Date: 20040408
  Transmission Date: 20050328
  Serious: Yes (Hospitalization)
  Sender: FDA-Public Use
  Company Number: DE-BRISTOL-MYERS SQUIBB COMPANY-12555751

PATIENT
  Age: 51 Year
  Sex: Female
  Weight: 60 kg

DRUGS (4)
  1. TAXOL [Suspect]
     Indication: BREAST CANCER
     Dosage: THERAPY DATES: 04-FEB-2003 TO 14-APR-2003
     Route: 042
     Dates: start: 20030414, end: 20030414
  2. CYCLOPHOSPHAMIDE [Suspect]
     Indication: BREAST CANCER
     Dosage: THERAPY DATES: 01-NOV-2003 TO 03-JAN-2004
     Route: 042
     Dates: start: 20040103, end: 20040103
  3. EPIRUBICIN [Suspect]
     Indication: BREAST CANCER
     Dosage: THERAPY DATES: 01-NOV-2002 TO 03-JAN-2003
     Route: 042
     Dates: start: 20030103, end: 20030103
  4. HERCEPTIN [Suspect]
     Indication: BREAST CANCER
     Dosage: THERAPY DATES: 03-FEB-2003 TO 23-FEB-2004
     Route: 042
     Dates: start: 20040223, end: 20040223

REACTIONS (1)
  - CARDIAC VALVE DISEASE [None]
